FAERS Safety Report 10993026 (Version 1)
Quarter: 2015Q2

REPORT INFORMATION
  Report Type: Spontaneous
  Country: US (occurrence: US)
  Receive Date: 20150406
  Receipt Date: 20150406
  Transmission Date: 20150821
  Serious: Yes (Other)
  Sender: FDA-Public Use
  Company Number: US-UCBSA-2015005178

PATIENT
  Age: 52 Year
  Sex: Male
  Weight: 72.1 kg

DRUGS (11)
  1. METRONIDAZOLE. [Concomitant]
     Active Substance: METRONIDAZOLE
     Indication: PRODUCT USED FOR UNKNOWN INDICATION
     Dosage: UNK
  2. XYREM [Interacting]
     Active Substance: SODIUM OXYBATE
     Dosage: 2.5 G, 2X/DAY (BID)
     Route: 048
     Dates: start: 201502
  3. XYREM [Suspect]
     Active Substance: SODIUM OXYBATE
     Indication: INSOMNIA
     Dosage: 2.25 G, 2X/DAY (BID)
     Route: 048
     Dates: start: 201002, end: 201002
  4. VALIUM [Interacting]
     Active Substance: DIAZEPAM
     Indication: PRODUCT USED FOR UNKNOWN INDICATION
     Dosage: UNK
  5. XYREM [Interacting]
     Active Substance: SODIUM OXYBATE
     Dosage: 3 G, 2X/DAY (BID)
     Route: 048
     Dates: start: 201108, end: 201502
  6. VALPROIC ACID. [Suspect]
     Active Substance: VALPROIC ACID
     Indication: POST CONCUSSION SYNDROME
     Dosage: UNK
     Route: 048
  7. CIPROFLOXACIN. [Concomitant]
     Active Substance: CIPROFLOXACIN
     Indication: PRODUCT USED FOR UNKNOWN INDICATION
  8. TURMERIC [Concomitant]
     Active Substance: TURMERIC
     Indication: SUPPLEMENTATION THERAPY
     Dosage: UNK
  9. XYREM [Interacting]
     Active Substance: SODIUM OXYBATE
     Indication: UNEVALUABLE EVENT
     Dosage: UNK, DOSE ADJUSTMENT
     Route: 048
  10. VALPROIC ACID. [Suspect]
     Active Substance: VALPROIC ACID
     Dosage: UNK
  11. FISH OIL [Concomitant]
     Active Substance: FISH OIL
     Indication: SUPPLEMENTATION THERAPY
     Dosage: UNK

REACTIONS (13)
  - Contraindicated drug administered [Unknown]
  - Dyspnoea [Recovered/Resolved]
  - Discomfort [Not Recovered/Not Resolved]
  - Hyperhidrosis [Not Recovered/Not Resolved]
  - Diverticulum [Not Recovered/Not Resolved]
  - Respiratory depression [Recovered/Resolved]
  - Concussion [Unknown]
  - Diverticulitis [Not Recovered/Not Resolved]
  - Large intestinal haemorrhage [Unknown]
  - Gastric haemorrhage [Unknown]
  - Thinking abnormal [Recovered/Resolved]
  - Drug interaction [Unknown]
  - Anxiety [Not Recovered/Not Resolved]

NARRATIVE: CASE EVENT DATE: 2014
